FAERS Safety Report 25505331 (Version 1)
Quarter: 2025Q3

REPORT INFORMATION
  Report Type: Spontaneous
  Country: EU (occurrence: EU)
  Receive Date: 20250702
  Receipt Date: 20250702
  Transmission Date: 20251021
  Serious: Yes (Other)
  Sender: MYLAN
  Company Number: None

PATIENT
  Age: 52 Year
  Sex: Female
  Weight: 61 kg

DRUGS (16)
  1. POSACONAZOLE [Suspect]
     Active Substance: POSACONAZOLE
     Indication: Antifungal prophylaxis
     Dates: start: 20250514, end: 20250530
  2. POSACONAZOLE [Suspect]
     Active Substance: POSACONAZOLE
     Route: 048
     Dates: start: 20250514, end: 20250530
  3. POSACONAZOLE [Suspect]
     Active Substance: POSACONAZOLE
     Route: 048
     Dates: start: 20250514, end: 20250530
  4. POSACONAZOLE [Suspect]
     Active Substance: POSACONAZOLE
     Dates: start: 20250514, end: 20250530
  5. ALLOPURINOL [Suspect]
     Active Substance: ALLOPURINOL
     Indication: Prophylaxis
     Dosage: 100 MILLIGRAM, QD
     Dates: start: 20250423, end: 20250530
  6. ALLOPURINOL [Suspect]
     Active Substance: ALLOPURINOL
     Dosage: 100 MILLIGRAM, QD
     Route: 048
     Dates: start: 20250423, end: 20250530
  7. ALLOPURINOL [Suspect]
     Active Substance: ALLOPURINOL
     Dosage: 100 MILLIGRAM, QD
     Route: 048
     Dates: start: 20250423, end: 20250530
  8. ALLOPURINOL [Suspect]
     Active Substance: ALLOPURINOL
     Dosage: 100 MILLIGRAM, QD
     Dates: start: 20250423, end: 20250530
  9. AUGMENTIN [Suspect]
     Active Substance: AMOXICILLIN\CLAVULANATE POTASSIUM
     Indication: Pyrexia
     Dosage: 1 GRAM, Q8H
     Dates: start: 20250527, end: 20250528
  10. AUGMENTIN [Suspect]
     Active Substance: AMOXICILLIN\CLAVULANATE POTASSIUM
     Dosage: 1 GRAM, Q8H
     Dates: start: 20250527, end: 20250528
  11. AUGMENTIN [Suspect]
     Active Substance: AMOXICILLIN\CLAVULANATE POTASSIUM
     Dosage: 1 GRAM, Q8H
     Route: 065
     Dates: start: 20250527, end: 20250528
  12. AUGMENTIN [Suspect]
     Active Substance: AMOXICILLIN\CLAVULANATE POTASSIUM
     Dosage: 1 GRAM, Q8H
     Route: 065
     Dates: start: 20250527, end: 20250528
  13. AUGMENTIN [Suspect]
     Active Substance: AMOXICILLIN\CLAVULANATE POTASSIUM
     Dosage: 2 GRAM, Q8H
     Dates: start: 20250528, end: 20250530
  14. AUGMENTIN [Suspect]
     Active Substance: AMOXICILLIN\CLAVULANATE POTASSIUM
     Dosage: 2 GRAM, Q8H
     Dates: start: 20250528, end: 20250530
  15. AUGMENTIN [Suspect]
     Active Substance: AMOXICILLIN\CLAVULANATE POTASSIUM
     Dosage: 2 GRAM, Q8H
     Route: 065
     Dates: start: 20250528, end: 20250530
  16. AUGMENTIN [Suspect]
     Active Substance: AMOXICILLIN\CLAVULANATE POTASSIUM
     Dosage: 2 GRAM, Q8H
     Route: 065
     Dates: start: 20250528, end: 20250530

REACTIONS (1)
  - Hepatic cytolysis [Recovering/Resolving]

NARRATIVE: CASE EVENT DATE: 20250528
